FAERS Safety Report 24917580 (Version 1)
Quarter: 2025Q1

REPORT INFORMATION
  Report Type: Spontaneous
  Country: US (occurrence: None)
  Receive Date: 20250203
  Receipt Date: 20250203
  Transmission Date: 20250409
  Serious: Yes (Hospitalization)
  Sender: FDA-CTU
  Company Number: None

PATIENT
  Sex: Male

DRUGS (9)
  1. VIGABATRIN [Suspect]
     Active Substance: VIGABATRIN
     Indication: Epilepsy
     Dosage: FREQUENCY : TWICE A DAY;?OTHER ROUTE : GTUBE;?
     Route: 050
  2. KEPPRA [Concomitant]
     Active Substance: LEVETIRACETAM
  3. TOPAMAX [Concomitant]
     Active Substance: TOPIRAMATE
  4. METRONIDAZOLE [Concomitant]
     Active Substance: METRONIDAZOLE
  5. CARGLUMIC ACID [Concomitant]
     Active Substance: CARGLUMIC ACID
  6. OMEPRAZOLE [Concomitant]
     Active Substance: OMEPRAZOLE
  7. BIOTIN [Concomitant]
     Active Substance: BIOTIN
  8. LEVOCARNITINE [Concomitant]
     Active Substance: LEVOCARNITINE
  9. VALINE [Concomitant]
     Active Substance: VALINE

REACTIONS (2)
  - Product use issue [None]
  - Product dispensing issue [None]
